FAERS Safety Report 7545635-2 (Version None)
Quarter: 2011Q2

REPORT INFORMATION
  Report Type: 
  Country: None (occurrence: None)
  Receive Date: 20110614
  Receipt Date: 20110531
  Transmission Date: 20111010
  Serious: Yes (Other)
  Sender: FDA-Public Use
  Company Number: DK-RANBAXY-2009RR-25844

PATIENT
  Sex: Male
  Weight: 62 kg

DRUGS (7)
  1. SERTRALINE HYDROCHLORIDE [Suspect]
     Dosage: 100 MG, UNK
     Dates: start: 20080221, end: 20080407
  2. SERTRALINE HYDROCHLORIDE [Suspect]
     Dosage: 100 MG, UNK
     Dates: start: 20080812, end: 20080917
  3. SERTRALINE HYDROCHLORIDE [Suspect]
     Dosage: 50 MG, UNK
     Dates: start: 20080407, end: 20080530
  4. SERTRALINE HYDROCHLORIDE [Suspect]
     Indication: OBSESSIVE-COMPULSIVE DISORDER
     Dosage: 50 MG, UNK
     Dates: start: 20080213, end: 20080221
  5. SERTRALINE HYDROCHLORIDE [Suspect]
     Dosage: 50 MG, UNK
     Dates: start: 20080917, end: 20081008
  6. CITALOPRAM HYDROBROMIDE [Suspect]
     Dosage: 20 MG, UNK
     Dates: start: 20080708, end: 20080722
  7. SERTRALINE HYDROCHLORIDE [Suspect]
     Dosage: 50 MG, UNK
     Dates: start: 20080801, end: 20080812

REACTIONS (5)
  - FEELING DRUNK [None]
  - HYPERHIDROSIS [None]
  - RESTLESSNESS [None]
  - ACNE [None]
  - FATIGUE [None]
